FAERS Safety Report 5655461-7 (Version None)
Quarter: 2008Q1

REPORT INFORMATION
  Report Type: 
  Country: None (occurrence: None)
  Receive Date: 20080307
  Receipt Date: 20080229
  Transmission Date: 20080703
  Serious: Yes (Life-Threatening, Hospitalization)
  Sender: FDA-Public Use
  Company Number: US-ABBOTT-07P-163-0425353-00

PATIENT
  Sex: Male
  Weight: 66.738 kg

DRUGS (22)
  1. RITONAVIR SOFT GELATIN CAPSULES [Suspect]
     Indication: HIV INFECTION
     Route: 048
     Dates: start: 20061115, end: 20070508
  2. TMC114 [Concomitant]
     Indication: HIV INFECTION
     Route: 048
     Dates: start: 20061115, end: 20070508
  3. TMC125 [Concomitant]
     Indication: HIV INFECTION
     Route: 048
     Dates: start: 20061115, end: 20070508
  4. TRUVADA [Concomitant]
     Indication: HIV INFECTION
     Dates: end: 20070508
  5. DIDANOSINE [Concomitant]
     Indication: HIV INFECTION
     Route: 048
     Dates: end: 20070508
  6. ENFUVIRTIDE [Concomitant]
     Indication: SYSTEMIC ANTIVIRAL TREATMENT
     Route: 058
     Dates: end: 20070508
  7. BACTRIM [Concomitant]
     Indication: INFECTION PROPHYLAXIS
     Route: 048
     Dates: start: 20060421
  8. AZITHROMYCIN [Concomitant]
     Indication: CARDIOVASCULAR EVENT PROPHYLAXIS
     Route: 048
  9. FENOFIBRATE [Concomitant]
     Indication: HYPERCHOLESTEROLAEMIA
     Route: 048
  10. ATORVASTATIN CALCIUM [Concomitant]
     Indication: HYPERCHOLESTEROLAEMIA
     Route: 048
  11. FOLIC ACID [Concomitant]
     Indication: MEDICAL DIET
     Route: 048
  12. ROSIGLITAZONE MALEATE [Concomitant]
     Indication: DIABETES MELLITUS
     Route: 048
  13. LISINOPRIL [Concomitant]
     Indication: HYPERTENSION
     Route: 048
  14. VITAMIN CAP [Concomitant]
     Indication: MEDICAL DIET
     Route: 048
  15. ASPIRIN [Concomitant]
     Indication: AORTIC VALVE PROLAPSE
     Route: 048
  16. ASPIRIN [Concomitant]
     Indication: AORTIC VALVE STENOSIS
  17. FLUCONAZOLE [Concomitant]
     Indication: ORAL CANDIDIASIS
     Route: 048
  18. TESTOSTERONE [Concomitant]
     Indication: SUPPLEMENTATION THERAPY
     Route: 030
  19. ACETAMINOPHEN [Concomitant]
     Indication: SINUS CONGESTION
  20. FLUTICASONE PROPIONATE [Concomitant]
     Indication: UPPER RESPIRATORY TRACT INFECTION
     Route: 045
  21. FLUCONAZOLE [Concomitant]
     Indication: MENINGITIS CRYPTOCOCCAL
     Route: 048
  22. FLOXIN OTIC [Concomitant]
     Indication: OTITIS EXTERNA
     Route: 061
     Dates: start: 20070222, end: 20070303

REACTIONS (1)
  - BLOOD CREATININE INCREASED [None]
